FAERS Safety Report 10009738 (Version 2)
Quarter: 2014Q1

REPORT INFORMATION
  Report Type: Spontaneous
  Country: US (occurrence: US)
  Receive Date: 20140312
  Receipt Date: 20140312
  Transmission Date: 20141002
  Serious: Yes (Other)
  Sender: FDA-Public Use
  Company Number: US-INCYTE CORPORATION-2012IN001890

PATIENT
  Age: 78 Year
  Sex: Male
  Weight: 79.82 kg

DRUGS (8)
  1. JAKAFI [Suspect]
     Indication: MYELOFIBROSIS
     Dosage: 15 MG, BID
     Route: 048
     Dates: start: 20120515, end: 20120824
  2. ALLOPURINOL [Concomitant]
     Dosage: 100 MG, QD
  3. HYDREA [Concomitant]
  4. SIMVASTATIN [Concomitant]
     Dosage: 40 MG, QD
  5. UDAMIN SP [Concomitant]
  6. VITAMIN B12 [Concomitant]
  7. SAW PALMETTO [Concomitant]
  8. FISH OIL [Concomitant]

REACTIONS (3)
  - Thrombocytopenia [Not Recovered/Not Resolved]
  - Haemoglobin decreased [Not Recovered/Not Resolved]
  - Drug ineffective [Unknown]
